FAERS Safety Report 4588774-0 (Version None)
Quarter: 2005Q1

REPORT INFORMATION
  Report Type: 
  Country: None (occurrence: None)
  Receive Date: 20050222
  Receipt Date: 20050120
  Transmission Date: 20050727
  Serious: Yes (Death, Hospitalization)
  Sender: FDA-Public Use
  Company Number: PHBS2005JP01152

PATIENT
  Age: 50 Year
  Sex: Male

DRUGS (4)
  1. LOXONIN [Suspect]
     Indication: DIABETES MELLITUS
     Route: 048
     Dates: start: 20050101, end: 20050101
  2. ANTIHYPERTENSIVES [Suspect]
     Indication: HYPERTENSION
  3. ANTIDIABETICS [Suspect]
     Indication: DIABETES MELLITUS
  4. VOLTAREN [Suspect]
     Indication: BACK PAIN
     Dosage: 50 MG/DAY
     Route: 054
     Dates: start: 20050101, end: 20050101

REACTIONS (3)
  - CARDIAC ARREST [None]
  - COMA [None]
  - DEATH [None]
